FAERS Safety Report 8510553-X (Version None)
Quarter: 2012Q3

REPORT INFORMATION
  Report Type: 
  Country: None (occurrence: None)
  Receive Date: 20120716
  Receipt Date: 20120705
  Transmission Date: 20120928
  Serious: Yes (Hospitalization)
  Sender: FDA-Public Use
  Company Number: DE-BIOGENIDEC-2012BI016020

PATIENT
  Age: 43 Year
  Sex: Female
  Weight: 59 kg

DRUGS (7)
  1. CARVEDILOL [Concomitant]
     Indication: CARDIAC FAILURE
     Dates: start: 20091201
  2. SIMVASTATIN [Concomitant]
     Indication: HYPERLIPIDAEMIA
     Dates: start: 20091201
  3. SPIRONOLACTONE [Concomitant]
     Indication: CARDIAC FAILURE
     Dates: start: 20091201
  4. RAMIPRIL [Concomitant]
     Indication: CARDIAC FAILURE
     Dates: start: 20091201
  5. TORSEMIDE [Concomitant]
     Indication: CARDIAC FAILURE
     Dates: start: 20091201
  6. TYSABRI [Suspect]
     Indication: RELAPSING-REMITTING MULTIPLE SCLEROSIS
     Route: 042
     Dates: start: 20120109, end: 20120501
  7. ASPIRIN [Concomitant]
     Indication: PLATELET AGGREGATION INHIBITION
     Dates: start: 20101001

REACTIONS (2)
  - MULTIPLE SCLEROSIS RELAPSE [None]
  - PROGRESSIVE MULTIFOCAL LEUKOENCEPHALOPATHY [None]
